FAERS Safety Report 7470136-X (Version None)
Quarter: 2011Q2

REPORT INFORMATION
  Report Type: 
  Country: None (occurrence: None)
  Receive Date: 20110510
  Receipt Date: 20110502
  Transmission Date: 20111010
  Serious: Yes (Other)
  Sender: FDA-Public Use
  Company Number: A0926476A

PATIENT
  Age: 46 Year
  Sex: Female
  Weight: 70.8 kg

DRUGS (4)
  1. FLOLAN [Suspect]
     Indication: PULMONARY ARTERIAL HYPERTENSION
     Dosage: 40.6NGKM UNKNOWN
     Route: 065
     Dates: start: 20100427
  2. WARFARIN [Concomitant]
     Route: 065
  3. LASIX [Concomitant]
     Dosage: 40MG PER DAY
     Route: 065
  4. OXYGEN [Concomitant]
     Route: 065

REACTIONS (3)
  - CYANOSIS [None]
  - DRUG ADMINISTRATION ERROR [None]
  - TREATMENT NONCOMPLIANCE [None]
